FAERS Safety Report 22122382 (Version 1)
Quarter: 2023Q1

REPORT INFORMATION
  Report Type: Spontaneous
  Country: US (occurrence: US)
  Receive Date: 20230321
  Receipt Date: 20230321
  Transmission Date: 20230418
  Serious: Yes (Other)
  Sender: FDA-Public Use
  Company Number: US-BAYER-2023A034877

PATIENT
  Age: 15 Year
  Sex: Male

DRUGS (3)
  1. VITRAKVI [Suspect]
     Active Substance: LAROTRECTINIB
     Indication: Spindle cell sarcoma
     Dosage: UNK
     Dates: start: 202107
  2. VITRAKVI [Suspect]
     Active Substance: LAROTRECTINIB
     Indication: Spindle cell sarcoma
     Dosage: UNK
  3. VITRAKVI [Suspect]
     Active Substance: LAROTRECTINIB
     Indication: Spindle cell sarcoma
     Dosage: UNK

REACTIONS (3)
  - Spindle cell sarcoma [None]
  - Metastases to muscle [None]
  - Metastases to lymph nodes [None]
